FAERS Safety Report 5959187-1 (Version None)
Quarter: 2008Q4

REPORT INFORMATION
  Report Type: 
  Country: None (occurrence: None)
  Receive Date: 20081120
  Receipt Date: 20080604
  Transmission Date: 20090506
  Serious: No
  Sender: FDA-Public Use
  Company Number: A0730350A

PATIENT
  Age: 37 Year
  Sex: Male

DRUGS (2)
  1. WELLBUTRIN SR [Suspect]
     Indication: DEPRESSION
     Dosage: 150MG TWICE PER DAY
     Route: 048
     Dates: start: 20080501, end: 20080501
  2. DIOVAN [Concomitant]

REACTIONS (7)
  - DRUG INTOLERANCE [None]
  - EAR DISCOMFORT [None]
  - FEELING JITTERY [None]
  - HEADACHE [None]
  - IRRITABILITY [None]
  - TENSION HEADACHE [None]
  - TINNITUS [None]
